FAERS Safety Report 14833231 (Version 4)
Quarter: 2018Q2

REPORT INFORMATION
  Report Type: Spontaneous
  Country: DE (occurrence: DE)
  Receive Date: 20180501
  Receipt Date: 20180605
  Transmission Date: 20180711
  Serious: Yes (Hospitalization)
  Sender: FDA-Public Use
  Company Number: DE-PFIZER INC-2018178702

PATIENT
  Age: 75 Year
  Sex: Female

DRUGS (16)
  1. RAMIPRIL. [Suspect]
     Active Substance: RAMIPRIL
     Dosage: UNK, 2X/DAY (1 DF AND 0.5 DF TWICE DAILY)
     Route: 048
  2. PHENPROCOUMON [Concomitant]
     Active Substance: PHENPROCOUMON
     Dosage: NACH INR
  3. INSULIN HUMAN [Concomitant]
     Active Substance: INSULIN HUMAN
     Dosage: NACH SCHEMA
  4. XIPAMIDE [Suspect]
     Active Substance: XIPAMIDE
     Dosage: 10 MG, DAILY (1-0-0-0)
     Route: 065
  5. METFORMIN [Concomitant]
     Active Substance: METFORMIN HYDROCHLORIDE
     Dosage: 850 MG, 2X/DAY (1-0-1-0)
  6. SIMVASTATIN. [Concomitant]
     Active Substance: SIMVASTATIN
     Dosage: (40 MG, 1X/DAY (0-0-1-0)
  7. DIGITOXIN [Concomitant]
     Active Substance: DIGITOXIN
     Dosage: 0.07 MG, 1X/DAY (1-0-0-0)
  8. RANOLAZINE. [Concomitant]
     Active Substance: RANOLAZINE
     Dosage: 500 MG, 1X/DAY (0-1-0-0)
  9. ACETYLSALICYLSAEURE [Concomitant]
     Active Substance: ASPIRIN
     Dosage: 100 MG, 1X/DAY (0-0-1-0)
  10. GLIMEPIRIDE. [Concomitant]
     Active Substance: GLIMEPIRIDE
     Dosage: 1 MG, 1X/DAY (1-0-0-0)
  11. INSULIN HUMAN [Concomitant]
     Active Substance: INSULIN HUMAN
     Dosage: UNK
  12. ISOSORBIDE MONONITRATE. [Suspect]
     Active Substance: ISOSORBIDE MONONITRATE
     Dosage: 8 MG, 2X/DAY (1-0-1-0)
     Route: 048
  13. KALIUM [Concomitant]
     Active Substance: POTASSIUM CHLORIDE
     Dosage: 2X/DAY (1-1-0-0)
  14. TORASEMID [Suspect]
     Active Substance: TORSEMIDE
     Dosage: 20 MG, DAILY (1-0-0-0)
     Route: 048
  15. METOPROLOL TARTRATE. [Suspect]
     Active Substance: METOPROLOL TARTRATE
     Dosage: 95 MG, 2X/DAY (1-0-1-0)
     Route: 065
  16. PHENPROCOUMON [Concomitant]
     Active Substance: PHENPROCOUMON
     Dosage: UNK

REACTIONS (2)
  - Fall [Unknown]
  - Fracture [Unknown]
